FAERS Safety Report 6716208-6 (Version None)
Quarter: 2010Q2

REPORT INFORMATION
  Report Type: 
  Country: None (occurrence: None)
  Receive Date: 20100507
  Receipt Date: 20100427
  Transmission Date: 20101027
  Serious: Yes (Hospitalization)
  Sender: FDA-Public Use
  Company Number: AU-PFIZER INC-2010055339

PATIENT
  Age: 54 Year
  Sex: Female

DRUGS (2)
  1. SERTRALINE HCL [Suspect]
     Indication: DEPRESSION
     Dosage: 25 MG, 1X/DAY
  2. ATORVASTATIN [Concomitant]
     Indication: HYPERLIPIDAEMIA
     Dosage: 10 MG, 1X/DAY

REACTIONS (2)
  - CEREBROVASCULAR SPASM [None]
  - HEADACHE [None]
